FAERS Safety Report 7881593-9 (Version None)
Quarter: 2011Q4

REPORT INFORMATION
  Report Type: 
  Country: None (occurrence: None)
  Receive Date: 20111101
  Receipt Date: 20110527
  Transmission Date: 20120403
  Serious: Yes (Other)
  Sender: FDA-Public Use
  Company Number: US-AMGEN-QUU309010

PATIENT
  Age: 37 Year
  Sex: Female

DRUGS (6)
  1. ENBREL [Suspect]
     Indication: PSORIASIS
     Dosage: 50 MG, 2 TIMES/WK
     Dates: start: 20060307, end: 20080901
  2. TACALCITOL [Concomitant]
     Dosage: UNK UNK, UNK
     Dates: start: 20050404
  3. METHOTREXATE [Concomitant]
     Dosage: UNK UNK, UNK
     Dates: start: 20051103
  4. UNSPECIFIED MEDICATION [Concomitant]
     Dosage: UNK UNK, UNK
     Dates: start: 20060706
  5. ENBREL [Suspect]
     Dosage: 50 MG, QWK
     Dates: start: 20110401
  6. CLOBETASOL [Concomitant]
     Dosage: UNK UNK, UNK
     Dates: start: 20050403

REACTIONS (4)
  - MALIGNANT MELANOMA [None]
  - INJECTION SITE WARMTH [None]
  - INJECTION SITE ERYTHEMA [None]
  - PSORIASIS [None]
